FAERS Safety Report 23792599 (Version 1)
Quarter: 2024Q2

REPORT INFORMATION
  Report Type: Other
  Country: US (occurrence: None)
  Receive Date: 20240429
  Receipt Date: 20240429
  Transmission Date: 20240715
  Serious: Yes (Other)
  Sender: FDA-Public Use
  Company Number: US-ROCHE-3549540

PATIENT

DRUGS (7)
  1. ATEZOLIZUMAB [Suspect]
     Active Substance: ATEZOLIZUMAB
     Indication: Neoplasm malignant
     Route: 065
  2. PEMBROLIZUMAB [Suspect]
     Active Substance: PEMBROLIZUMAB
     Indication: Neoplasm malignant
     Route: 065
  3. NIVOLUMAB [Suspect]
     Active Substance: NIVOLUMAB
     Indication: Neoplasm malignant
     Route: 065
  4. IPILIMUMAB [Suspect]
     Active Substance: IPILIMUMAB
     Indication: Neoplasm malignant
     Route: 065
  5. DURVALUMAB [Suspect]
     Active Substance: DURVALUMAB
     Indication: Neoplasm malignant
     Route: 065
  6. AVELUMAB [Suspect]
     Active Substance: AVELUMAB
     Indication: Neoplasm malignant
     Route: 065
  7. CEMIPLIMAB [Suspect]
     Active Substance: CEMIPLIMAB
     Indication: Neoplasm malignant
     Route: 065

REACTIONS (31)
  - Encephalitis [Unknown]
  - Stevens-Johnson syndrome [Unknown]
  - Toxic epidermal necrolysis [Unknown]
  - Ketoacidosis [Unknown]
  - Rash [Unknown]
  - Pruritus [Unknown]
  - Vitiligo [Unknown]
  - Blood thyroid stimulating hormone abnormal [Unknown]
  - Thyroiditis [Unknown]
  - Hypothyroidism [Unknown]
  - Thyroid disorder [Unknown]
  - Hypophysitis [Unknown]
  - Adrenal insufficiency [Unknown]
  - Blood corticotrophin abnormal [Unknown]
  - Cortisol abnormal [Unknown]
  - Diabetes mellitus [Unknown]
  - Glycosylated haemoglobin abnormal [Unknown]
  - Blood glucose abnormal [Unknown]
  - Diarrhoea [Unknown]
  - Constipation [Unknown]
  - Bowel movement irregularity [Unknown]
  - Colitis [Unknown]
  - Hepatitis [Unknown]
  - Cholangitis [Unknown]
  - Hypertransaminasaemia [Unknown]
  - Pneumonitis [Unknown]
  - Myocarditis [Unknown]
  - Pericarditis [Unknown]
  - Myopericarditis [Unknown]
  - Lung disorder [Unknown]
  - Gastrointestinal disorder [Unknown]
